FAERS Safety Report 8429196-1 (Version None)
Quarter: 2012Q2

REPORT INFORMATION
  Report Type: 
  Country: None (occurrence: None)
  Receive Date: 20120612
  Receipt Date: 20120604
  Transmission Date: 20120825
  Serious: Yes (Hospitalization)
  Sender: FDA-Public Use
  Company Number: PHHY2012US047739

PATIENT
  Age: 71 Year
  Sex: Female

DRUGS (37)
  1. SYNTHROID [Concomitant]
     Dosage: 50 UG, QD
     Route: 048
     Dates: start: 20110223
  2. FLAGYL [Concomitant]
     Dosage: 500 MG, TID
  3. PRILOSEC [Concomitant]
     Indication: GASTROOESOPHAGEAL REFLUX DISEASE
     Dosage: 20 MG, UNK
     Route: 048
  4. BACTRIM [Concomitant]
  5. PROCRIT [Concomitant]
     Indication: ANAEMIA
     Dosage: 40000 U, QD
     Route: 058
     Dates: start: 20110223, end: 20110223
  6. PROGRAF [Concomitant]
     Dosage: 1 MG, BID
     Route: 048
     Dates: start: 20110228, end: 20110301
  7. ASPIRIN [Concomitant]
     Dosage: 162 MG, QD
     Route: 048
     Dates: start: 20111206, end: 20111206
  8. PROGRAF [Concomitant]
     Dosage: 0.5 MG, QD
     Route: 048
     Dates: start: 20110311
  9. ANCEF [Concomitant]
     Dosage: 1 G, IN DEXTROSE
     Route: 042
     Dates: start: 20110309, end: 20110309
  10. ZOLOFT [Concomitant]
     Dosage: 100 MG, UNK
     Route: 048
  11. NORVASC [Concomitant]
     Dosage: 10 MG, UNK
     Route: 048
  12. METOPROLOL TARTRATE [Concomitant]
     Indication: HYPERTENSION
     Dosage: 20 MG, BID
     Route: 048
     Dates: start: 20110222, end: 20110302
  13. METOPROLOL TARTRATE [Concomitant]
     Dosage: 25 MG, BID
     Route: 048
     Dates: start: 20110308
  14. ZOFRAN [Concomitant]
     Dosage: 4 MG, AS NEEDED
  15. DULCOLAX [Concomitant]
     Dosage: 5 MG, PRN
     Route: 048
     Dates: start: 20111207, end: 20111207
  16. VALCYTE [Concomitant]
     Dosage: 225 MG, QD
     Route: 048
     Dates: start: 20110222, end: 20110302
  17. PEPCID [Concomitant]
     Dosage: 20 MG, BID
     Route: 048
     Dates: start: 20110222, end: 20110302
  18. ZANTAC [Concomitant]
     Dosage: 150 MG, BID
     Route: 048
     Dates: start: 20110222
  19. PROGRAF [Concomitant]
     Dosage: 3 MG, BID
     Route: 048
     Dates: start: 20110224, end: 20110225
  20. PROGRAF [Concomitant]
     Dosage: 0.5 MG, BID
     Route: 048
     Dates: start: 20110301, end: 20110310
  21. CULTURELLE [Concomitant]
     Dosage: 1 DF, BID
     Route: 048
  22. NITROSTAT [Concomitant]
     Dosage: 0.4 MG, UNK
     Dates: start: 20111206, end: 20111206
  23. COLACE [Concomitant]
     Dosage: 100 MG, BID
     Route: 048
     Dates: start: 20111207, end: 20111207
  24. CREON [Concomitant]
     Indication: PANCREATIC INSUFFICIENCY
     Dosage: 12000 U, TID
     Route: 048
     Dates: start: 20110222
  25. PERCOCET [Concomitant]
     Dosage: 1 DF, UNK
     Route: 048
     Dates: start: 20110222, end: 20110302
  26. PROGRAF [Concomitant]
     Dosage: 1.5 MG, BID
     Route: 048
     Dates: start: 20110226, end: 20110228
  27. FLORESTOR [Concomitant]
     Dosage: 250 MG, BID
     Route: 048
  28. MYFORTIC [Suspect]
     Indication: RENAL TRANSPLANT
     Dosage: 720 MG, BID
     Route: 048
  29. MYFORTIC [Suspect]
     Dosage: 360 MG, QID
     Route: 048
  30. PROGRAF [Concomitant]
     Dosage: 4 MG, BID
     Route: 048
     Dates: start: 20110222, end: 20110223
  31. NITRO-BID [Concomitant]
     Dates: start: 20111207, end: 20111207
  32. ACETAMINOPHEN [Concomitant]
     Dosage: 650 MG, PRN
     Route: 048
     Dates: start: 20111207, end: 20111207
  33. ELAVIL [Concomitant]
     Dosage: 1 MG, QD, AT BEDTIME
     Route: 048
     Dates: start: 20110222
  34. ERGOCALCIFEROL [Concomitant]
     Indication: VITAMIN D DEFICIENCY
     Dosage: 50000, ONCE A WEEK
     Route: 048
     Dates: start: 20110223
  35. IMODIUM [Concomitant]
     Dosage: 2 MG, QID
     Dates: start: 20110222, end: 20110302
  36. NYSTATIN [Concomitant]
     Dosage: 5 ML, TID
     Route: 048
  37. BENEFIBER [Concomitant]
     Route: 048

REACTIONS (9)
  - VOMITING [None]
  - NAUSEA [None]
  - ASTHENIA [None]
  - APHAGIA [None]
  - GAIT DISTURBANCE [None]
  - DIARRHOEA [None]
  - MOBILITY DECREASED [None]
  - URINARY TRACT INFECTION [None]
  - CHEST PAIN [None]
